FAERS Safety Report 9017974 (Version 2)
Quarter: 2013Q1

REPORT INFORMATION
  Report Type: Spontaneous
  Country: FI (occurrence: FI)
  Receive Date: 20130117
  Receipt Date: 20130328
  Transmission Date: 20140127
  Serious: Yes (Hospitalization)
  Sender: FDA-Public Use
  Company Number: FI-B.I. PHARMACEUTICALS,INC./RIDGEFIELD-2013-SW-00014SF

PATIENT
  Age: 86 Year
  Sex: Female

DRUGS (1)
  1. ASASANTIN RETARD [Suspect]
     Indication: PROMOTION OF PERIPHERAL CIRCULATION
     Dosage: DEPOT CAPSULE, 200 MG/25 MG TWICE DAILY
     Dates: start: 20120730, end: 20121230

REACTIONS (1)
  - Extradural haematoma [Unknown]
